FAERS Safety Report 23675845 (Version 1)
Quarter: 2024Q1

REPORT INFORMATION
  Report Type: Spontaneous
  Country: PL (occurrence: PL)
  Receive Date: 20240327
  Receipt Date: 20240327
  Transmission Date: 20240410
  Serious: Yes (Hospitalization, Other)
  Sender: FDA-Public Use
  Company Number: None

PATIENT
  Age: 19 Year
  Sex: Male

DRUGS (16)
  1. OLANZAPINE [Suspect]
     Active Substance: OLANZAPINE
     Indication: Schizophrenia
     Dosage: 10 MILLIGRAM, QD?DAILY DOSE: 10 MILLIGRAM
     Dates: start: 201909, end: 201910
  2. OLANZAPINE [Suspect]
     Active Substance: OLANZAPINE
     Indication: Schizophrenia
     Dosage: 5 MILLIGRAM, QD?DAILY DOSE: 5 MILLIGRAM
     Dates: start: 201910, end: 201911
  3. OLANZAPINE [Suspect]
     Active Substance: OLANZAPINE
     Indication: Schizophrenia
     Dosage: 5 MILLIGRAM, QD?DAILY DOSE: 5 MILLIGRAM
     Dates: start: 2020
  4. OLANZAPINE [Suspect]
     Active Substance: OLANZAPINE
     Indication: Schizophrenia
     Dosage: (START DATE: BETWEEN 2016-2017; UPTO 20 MG/DAY)?DAILY DOSE: 20 MILLIGRAM
     Dates: end: 201909
  5. ARIPIPRAZOLE [Suspect]
     Active Substance: ARIPIPRAZOLE
     Indication: Schizophrenia
     Dosage: 15 MILLIGRAM, QD (START DATE: BETWEEN 2016-2017)?DAILY DOSE: 15 MILLIGRAM
  6. FLUOXETINE [Suspect]
     Active Substance: FLUOXETINE HYDROCHLORIDE
     Indication: Schizophrenia
     Dosage: 20 MILLIGRAM, QD?DAILY DOSE: 20 MILLIGRAM
     Dates: end: 201910
  7. CARIPRAZINE [Suspect]
     Active Substance: CARIPRAZINE
     Indication: Schizophrenia
     Dosage: 3 MILLIGRAM, QD (AFTER 2 WEEEKS FROM NOV 2019)?DAILY DOSE: 3 MILLIGRAM
     Dates: start: 2019
  8. CARIPRAZINE [Suspect]
     Active Substance: CARIPRAZINE
     Indication: Schizophrenia
     Dosage: 1.5 MILLIGRAM, QD?DAILY DOSE: 1.5 MILLIGRAM
     Dates: start: 201911
  9. CARIPRAZINE [Suspect]
     Active Substance: CARIPRAZINE
     Indication: Schizophrenia
     Dosage: DAILY DOSE: 1.5 MILLIGRAM
  10. CLOMIPRAMINE [Suspect]
     Active Substance: CLOMIPRAMINE
     Indication: Schizophrenia
     Dosage: 75 MILLIGRAM, QD (START DATE: BETWEEN 2016-2017)?DAILY DOSE: 75 MILLIGRAM
  11. PREGABALIN [Suspect]
     Active Substance: PREGABALIN
     Indication: Schizophrenia
     Dosage: 75 MILLIGRAM, QD?DAILY DOSE: 75 MILLIGRAM
     Dates: start: 201909, end: 201911
  12. PREGABALIN [Suspect]
     Active Substance: PREGABALIN
     Indication: Schizophrenia
     Dosage: DAILY DOSE OF UP TO 150 MG (MODIFIED OVER THE NEXT 2 YEARS AFTER 2016-2017 )
     Dates: end: 201909
  13. LEVOMEPROMAZINE [Suspect]
     Active Substance: LEVOMEPROMAZINE
     Indication: Schizophrenia
     Dosage: 50 MILLIGRAM, QD (START DATE: BETWEEN 2016-2017)?DAILY DOSE: 50 MILLIGRAM
  14. RISPERIDONE [Suspect]
     Active Substance: RISPERIDONE
     Indication: Schizophrenia
     Dosage: 37.5 MILLIGRAM, Q2W (MODIFIED OVER THE NEXT 2 YEARS AFTER 2016-2017)
  15. RISPERIDONE [Suspect]
     Active Substance: RISPERIDONE
     Indication: Schizophrenia
     Dosage: 4 MILLIGRAM, QD (START DATE: BETWEEN 2016-2017)?DAILY DOSE: 4 MILLIGRAM
  16. SERTRALINE [Suspect]
     Active Substance: SERTRALINE HYDROCHLORIDE
     Indication: Schizophrenia
     Dosage: QD (UPTO 200 MG/DAY) (START DATE: BETWEEN 2016-2017)?DAILY DOSE: 200 MILLIGRAM

REACTIONS (3)
  - Obsessive-compulsive symptom [Recovering/Resolving]
  - Loss of personal independence in daily activities [Unknown]
  - Drug ineffective [Recovered/Resolved]

NARRATIVE: CASE EVENT DATE: 20190101
